FAERS Safety Report 19624010 (Version 1)
Quarter: 2021Q3

REPORT INFORMATION
  Report Type: Spontaneous
  Country: GB (occurrence: GB)
  Receive Date: 20210728
  Receipt Date: 20210728
  Transmission Date: 20211014
  Serious: Yes (Hospitalization, Other)
  Sender: FDA-Public Use
  Company Number: GB-MYLANLABS-2021M1045303

PATIENT
  Age: 51 Year
  Sex: Female
  Weight: 66 kg

DRUGS (3)
  1. CLENIL MODULITE [Concomitant]
     Active Substance: BECLOMETHASONE DIPROPIONATE
     Indication: ILL-DEFINED DISORDER
     Dosage: UNK
  2. AMLODIPINE [Suspect]
     Active Substance: AMLODIPINE BESYLATE
     Indication: ILL-DEFINED DISORDER
     Dosage: 10 MILLIGRAM
     Route: 048
     Dates: start: 20210504, end: 20210531
  3. THYROXINE [Concomitant]
     Active Substance: LEVOTHYROXINE
     Indication: ILL-DEFINED DISORDER
     Dosage: UNK

REACTIONS (9)
  - Product dispensing error [Unknown]
  - Miliaria [Unknown]
  - Joint swelling [Not Recovered/Not Resolved]
  - Palpitations [Unknown]
  - Seizure [Unknown]
  - Flushing [Unknown]
  - Wrong product administered [Unknown]
  - Pruritus [Unknown]
  - Product prescribing error [Unknown]
